FAERS Safety Report 24616063 (Version 2)
Quarter: 2024Q4

REPORT INFORMATION
  Report Type: Spontaneous
  Country: GB (occurrence: GB)
  Receive Date: 20241113
  Receipt Date: 20241122
  Transmission Date: 20250115
  Serious: Yes (Other)
  Sender: TEVA
  Company Number: None

PATIENT
  Sex: Female

DRUGS (2)
  1. BISOPROLOL [Suspect]
     Active Substance: BISOPROLOL
     Indication: Heart rate increased
     Route: 048
     Dates: start: 20241030
  2. AMOXICILLIN\CLAVULANATE POTASSIUM [Concomitant]
     Active Substance: AMOXICILLIN\CLAVULANATE POTASSIUM
     Indication: Infection
     Route: 065

REACTIONS (9)
  - Chest discomfort [Unknown]
  - Skin discolouration [Unknown]
  - Agitation [Unknown]
  - Paraesthesia [Unknown]
  - Dizziness [Unknown]
  - Heart rate decreased [Unknown]
  - Head discomfort [Unknown]
  - Bradycardia [Unknown]
  - Tachycardia [Unknown]
